FAERS Safety Report 9835327 (Version 2)
Quarter: 2014Q2

REPORT INFORMATION
  Report Type: Spontaneous
  Country: US (occurrence: US)
  Receive Date: 20140122
  Receipt Date: 20140424
  Transmission Date: 20141212
  Serious: Yes (Death, Other)
  Sender: FDA-Public Use
  Company Number: US-BRISTOL-MYERS SQUIBB COMPANY-19930973

PATIENT
  Age: 85 Year
  Sex: Male

DRUGS (7)
  1. ELIQUIS [Suspect]
     Indication: ATRIAL FIBRILLATION
     Dates: start: 20131121, end: 20131201
  2. AMLODIPINE [Concomitant]
  3. JANUVIA [Concomitant]
  4. LIPITOR [Concomitant]
  5. TOPROL [Concomitant]
  6. SOTALOL [Concomitant]
  7. ZYRTEC [Concomitant]

REACTIONS (1)
  - Haemorrhage intracranial [Fatal]
